FAERS Safety Report 20236334 (Version 3)
Quarter: 2022Q1

REPORT INFORMATION
  Report Type: Report from Study
  Country: CO (occurrence: CO)
  Receive Date: 20211228
  Receipt Date: 20220107
  Transmission Date: 20220424
  Serious: Yes (Other)
  Sender: FDA-Public Use
  Company Number: CO-NOVARTISPH-NVSC2021CO258103

PATIENT
  Sex: Female
  Weight: 74 kg

DRUGS (4)
  1. AFINITOR [Suspect]
     Active Substance: EVEROLIMUS
     Indication: Breast cancer
     Dosage: 10 MG, QD
     Route: 048
     Dates: start: 20211013
  2. AFINITOR [Suspect]
     Active Substance: EVEROLIMUS
     Dosage: 5 MG, QD
     Route: 048
  3. VALSARTAN [Concomitant]
     Active Substance: VALSARTAN
     Indication: Hypertension
     Dosage: 80 MG, 12 HOURS
     Route: 048
  4. BISOPROLOL FUMARATE [Concomitant]
     Active Substance: BISOPROLOL FUMARATE
     Indication: Cardiac disorder
     Dosage: UNKNOWN, 24 HOURS
     Route: 065

REACTIONS (24)
  - Neoplasm [Unknown]
  - Hypersensitivity [Recovered/Resolved]
  - Oral mucosal exfoliation [Unknown]
  - Feeding disorder [Unknown]
  - Speech disorder [Unknown]
  - Skin disorder [Recovered/Resolved]
  - Feeling abnormal [Unknown]
  - Noninfective gingivitis [Recovering/Resolving]
  - Wrong technique in product usage process [Unknown]
  - Cheilitis [Unknown]
  - Lip exfoliation [Unknown]
  - Rash [Unknown]
  - Pruritus [Unknown]
  - Skin exfoliation [Unknown]
  - Cyst [Unknown]
  - Breast mass [Unknown]
  - Glossodynia [Unknown]
  - Erythema [Unknown]
  - Stomatitis [Recovering/Resolving]
  - Plicated tongue [Recovering/Resolving]
  - Mucosal inflammation [Unknown]
  - Hypersensitivity [Unknown]
  - Acne [Unknown]
  - Swelling [Unknown]
